FAERS Safety Report 5678258-0 (Version None)
Quarter: 2008Q1

REPORT INFORMATION
  Report Type: 
  Country: None (occurrence: None)
  Receive Date: 20080319
  Receipt Date: 20080310
  Transmission Date: 20080703
  Serious: Yes (Other)
  Sender: FDA-Public Use
  Company Number: S08-FRA-01016-01

PATIENT
  Age: 81 Year
  Sex: Female

DRUGS (8)
  1. MEMANTINE HCL [Suspect]
     Indication: PERSONALITY CHANGE DUE TO A GENERAL MEDICAL CONDITION
     Dosage: 20 MG QD PO
     Route: 048
     Dates: start: 20080308, end: 20080310
  2. MEMANTINE HCL [Suspect]
     Indication: PERSONALITY CHANGE DUE TO A GENERAL MEDICAL CONDITION
     Dosage: 5 MG QD PO
     Route: 048
     Dates: start: 20080201, end: 20080201
  3. MEMANTINE HCL [Suspect]
     Indication: PERSONALITY CHANGE DUE TO A GENERAL MEDICAL CONDITION
     Dosage: 10 MG QD PO
     Route: 048
     Dates: start: 20080201, end: 20080201
  4. MEMANTINE HCL [Suspect]
     Indication: PERSONALITY CHANGE DUE TO A GENERAL MEDICAL CONDITION
     Dosage: 15 MG QD PO
     Route: 048
     Dates: start: 20080301, end: 20080301
  5. IRBESARTAN [Concomitant]
  6. STABLON (TIANEPTINE) [Concomitant]
  7. LEVOTHYROXINE SODIUM [Concomitant]
  8. KEPPRA [Concomitant]

REACTIONS (3)
  - BALANCE DISORDER [None]
  - CONDITION AGGRAVATED [None]
  - MAJOR DEPRESSION [None]
